FAERS Safety Report 6864721-3 (Version None)
Quarter: 2010Q3

REPORT INFORMATION
  Report Type: 
  Country: None (occurrence: None)
  Receive Date: 20100721
  Receipt Date: 20080401
  Transmission Date: 20110219
  Serious: No
  Sender: FDA-Public Use
  Company Number: US-PFIZER INC-2008031243

PATIENT
  Sex: Male
  Weight: 109.1 kg

DRUGS (6)
  1. CHANTIX [Suspect]
     Indication: SMOKING CESSATION THERAPY
     Route: 048
     Dates: start: 20080309, end: 20080330
  2. LOVAZA [Concomitant]
  3. OMEGA-3 MARINE TRIGLYCERIDES [Concomitant]
  4. VISTARIL [Concomitant]
  5. HYDROXYZINE [Concomitant]
  6. TRAZODONE HYDROCHLORIDE [Concomitant]

REACTIONS (4)
  - ABNORMAL DREAMS [None]
  - ASTHENIA [None]
  - DISTURBANCE IN ATTENTION [None]
  - STRESS [None]
